FAERS Safety Report 9892876 (Version 2)
Quarter: 2014Q3

REPORT INFORMATION
  Report Type: Report from Study
  Country: JP (occurrence: JP)
  Receive Date: 20140213
  Receipt Date: 20140730
  Transmission Date: 20150326
  Serious: Yes (Death, Life-Threatening, Hospitalization)
  Sender: FDA-Public Use
  Company Number: JP-PFIZER INC-2014037976

PATIENT
  Age: 72 Year
  Sex: Male
  Weight: 54 kg

DRUGS (8)
  1. VINDESINE SULFATE [Suspect]
     Active Substance: VINDESINE SULFATE
     Dosage: UNK
  2. POTELIGEO [Suspect]
     Active Substance: MOGAMULIZUMAB
     Indication: ADULT T-CELL LYMPHOMA/LEUKAEMIA
     Dosage: 1 MG/KG, WEEKLY
     Route: 041
     Dates: start: 20130304, end: 20130318
  3. ZOVIRAX [Concomitant]
     Active Substance: ACYCLOVIR
     Indication: INFECTION PROPHYLAXIS
     Dosage: UNK
     Route: 048
     Dates: start: 20130304, end: 20130324
  4. PREDNISOLONE. [Concomitant]
     Active Substance: PREDNISOLONE
     Dosage: UNK
  5. ETOPOSIDE. [Concomitant]
     Active Substance: ETOPOSIDE
     Dosage: UNK
  6. ADRIACIN [Suspect]
     Active Substance: DOXORUBICIN HYDROCHLORIDE
     Dosage: UNK
  7. CARBOPLATIN. [Concomitant]
     Active Substance: CARBOPLATIN
     Dosage: UNK
  8. HYDROCORTONE [Concomitant]
     Active Substance: HYDROCORTISONE
     Indication: PROPHYLAXIS
     Dosage: 100 MG, WEEKLY
     Dates: start: 20130304, end: 20130318

REACTIONS (4)
  - Leukopenia [Not Recovered/Not Resolved]
  - Hypercalcaemia [Recovered/Resolved]
  - Cancer pain [Recovering/Resolving]
  - Sepsis [Fatal]

NARRATIVE: CASE EVENT DATE: 20130307
